FAERS Safety Report 17184162 (Version 1)
Quarter: 2019Q4

REPORT INFORMATION
  Report Type: Spontaneous
  Country: US (occurrence: US)
  Receive Date: 20191220
  Receipt Date: 20191220
  Transmission Date: 20200122
  Serious: No
  Sender: FDA-Public Use
  Company Number: US-RECKITT BENCKISER HEALTHCARE INT LIMITED-RB-80420-2019

PATIENT
  Age: 6 Year
  Sex: Male
  Weight: 20.41 kg

DRUGS (2)
  1. DELSYM [Suspect]
     Active Substance: DEXTROMETHORPHAN
     Indication: PYREXIA
  2. DELSYM [Suspect]
     Active Substance: DEXTROMETHORPHAN
     Indication: NASOPHARYNGITIS
     Dosage: 2.5 MILLILITER, BID
     Route: 065
     Dates: start: 20181229

REACTIONS (1)
  - Inappropriate schedule of product administration [Recovered/Resolved]
